FAERS Safety Report 23815968 (Version 5)
Quarter: 2024Q3

REPORT INFORMATION
  Report Type: Spontaneous
  Country: US (occurrence: US)
  Receive Date: 20240503
  Receipt Date: 20240827
  Transmission Date: 20241016
  Serious: Yes (Other)
  Sender: PFIZER
  Company Number: US-PFIZER INC-202400098780

PATIENT
  Age: 64 Year
  Sex: Male

DRUGS (1)
  1. VELSIPITY [Suspect]
     Active Substance: ETRASIMOD ARGININE
     Dosage: 2 MG
     Dates: end: 2024

REACTIONS (10)
  - Cerebrovascular accident [Unknown]
  - Arthropod bite [Unknown]
  - Fatigue [Unknown]
  - Dizziness [Unknown]
  - Balance disorder [Unknown]
  - Diplopia [Unknown]
  - Fall [Unknown]
  - Disturbance in attention [Unknown]
  - Feeling abnormal [Unknown]
  - Impaired driving ability [Unknown]
